FAERS Safety Report 4801916-4 (Version None)
Quarter: 2005Q4

REPORT INFORMATION
  Report Type: 
  Country: None (occurrence: None)
  Receive Date: 20051012
  Receipt Date: 20051003
  Transmission Date: 20060501
  Serious: Yes (Other)
  Sender: FDA-Public Use
  Company Number: US-YAMANOUCHI-YPA20050365

PATIENT
  Sex: Male

DRUGS (2)
  1. VESICARE [Suspect]
     Dosage: 5 MG PO
     Route: 048
  2. VESICARE [Suspect]
     Dosage: 10 MG PO
     Route: 048

REACTIONS (2)
  - ANAEMIA [None]
  - CONFUSIONAL STATE [None]
